FAERS Safety Report 5604091-1 (Version None)
Quarter: 2008Q1

REPORT INFORMATION
  Report Type: 
  Country: None (occurrence: None)
  Receive Date: 20080128
  Receipt Date: 20071222
  Transmission Date: 20080703
  Serious: No
  Sender: FDA-Public Use
  Company Number: PA-AVENTIS-200810340GDDC

PATIENT
  Age: 23 Year
  Sex: Female

DRUGS (3)
  1. ARAVA [Suspect]
     Indication: SYSTEMIC LUPUS ERYTHEMATOSUS
     Route: 048
     Dates: start: 20060101, end: 20071101
  2. METHOTREXATE [Concomitant]
     Indication: SYSTEMIC LUPUS ERYTHEMATOSUS
     Route: 048
     Dates: end: 20060101
  3. HYDROXYCHLOROQUINE [Concomitant]
     Indication: SYSTEMIC LUPUS ERYTHEMATOSUS
     Route: 048
     Dates: end: 20060101

REACTIONS (1)
  - DRUG EXPOSURE DURING PREGNANCY [None]
